FAERS Safety Report 10428061 (Version 3)
Quarter: 2014Q4

REPORT INFORMATION
  Report Type: Report from Study
  Country: JP (occurrence: JP)
  Receive Date: 20140903
  Receipt Date: 20141219
  Transmission Date: 20150528
  Serious: Yes (Other)
  Sender: FDA-Public Use
  Company Number: JP-JNJFOC-20140901534

PATIENT
  Age: 70 Year
  Sex: Female
  Weight: 57 kg

DRUGS (17)
  1. RIBAVIRIN. [Suspect]
     Active Substance: RIBAVIRIN
     Indication: CHRONIC HEPATITIS C
     Route: 048
     Dates: start: 20140403, end: 20140416
  2. EBASTINE [Concomitant]
     Active Substance: EBASTINE
     Indication: RASH
     Route: 048
     Dates: start: 20140520, end: 20140610
  3. PREDNISOLONE. [Concomitant]
     Active Substance: PREDNISOLONE
     Indication: HEADACHE
     Route: 048
     Dates: start: 20140530, end: 20140602
  4. DEXCHLORPHENIRAMINE MALEATE. [Concomitant]
     Active Substance: DEXCHLORPHENIRAMINE MALEATE
  5. RIBAVIRIN. [Suspect]
     Active Substance: RIBAVIRIN
     Indication: CHRONIC HEPATITIS C
     Route: 048
     Dates: start: 20140424, end: 20140501
  6. PEGINTRON [Suspect]
     Active Substance: PEGINTERFERON ALFA-2B
     Indication: CHRONIC HEPATITIS C
     Route: 058
     Dates: start: 20140501, end: 20140501
  7. CALONAL [Concomitant]
     Active Substance: ACETAMINOPHEN
     Indication: HEADACHE
     Route: 048
     Dates: start: 20140404, end: 20140514
  8. FAMOTIDINE. [Concomitant]
     Active Substance: FAMOTIDINE
     Indication: PROPHYLAXIS
     Route: 048
     Dates: start: 20140522, end: 20140602
  9. RIBAVIRIN. [Suspect]
     Active Substance: RIBAVIRIN
     Indication: CHRONIC HEPATITIS C
     Route: 048
     Dates: start: 20140417, end: 20140423
  10. PEGINTRON [Suspect]
     Active Substance: PEGINTERFERON ALFA-2B
     Indication: CHRONIC HEPATITIS C
     Route: 058
     Dates: start: 20140403, end: 20140424
  11. SOVRIAD [Suspect]
     Active Substance: SIMEPREVIR
     Indication: CHRONIC HEPATITIS C
     Route: 048
     Dates: start: 20140404, end: 20140501
  12. ETIZOLAM [Concomitant]
     Active Substance: ETIZOLAM
     Indication: INSOMNIA
     Route: 048
  13. BROTIZOLAM [Concomitant]
     Active Substance: BROTIZOLAM
     Indication: INSOMNIA
     Route: 048
  14. ALLOPURINOL. [Concomitant]
     Active Substance: ALLOPURINOL
     Indication: BLOOD URIC ACID INCREASED
     Route: 048
     Dates: start: 20140407, end: 20140508
  15. AMLODIPINE [Concomitant]
     Active Substance: AMLODIPINE BESYLATE
     Indication: HYPERTENSION
     Route: 048
  16. PREDNISOLONE. [Concomitant]
     Active Substance: PREDNISOLONE
     Indication: HEADACHE
     Route: 048
     Dates: start: 20140522, end: 20140525
  17. PREDNISOLONE. [Concomitant]
     Active Substance: PREDNISOLONE
     Indication: HEADACHE
     Route: 048
     Dates: start: 20140526, end: 20140529

REACTIONS (8)
  - Malaise [Recovering/Resolving]
  - Rash [Recovered/Resolved]
  - Platelet count decreased [Recovering/Resolving]
  - Blood bilirubin increased [Recovered/Resolved]
  - Headache [Recovering/Resolving]
  - Blood uric acid increased [Recovered/Resolved]
  - Anaemia [Recovering/Resolving]
  - Decreased appetite [Recovering/Resolving]

NARRATIVE: CASE EVENT DATE: 20140404
